FAERS Safety Report 11223334 (Version 2)
Quarter: 2015Q3

REPORT INFORMATION
  Report Type: Spontaneous
  Country: US (occurrence: US)
  Receive Date: 20150627
  Receipt Date: 20150825
  Transmission Date: 20151125
  Serious: Yes (Other)
  Sender: FDA-Public Use
  Company Number: PHEH2015US012122

PATIENT
  Age: 29 Year
  Sex: Male
  Weight: 180 kg

DRUGS (2)
  1. COSENTYX [Suspect]
     Active Substance: SECUKINUMAB
     Indication: PSORIASIS
     Dosage: 1 DF, QW
     Route: 058
     Dates: start: 20150528, end: 20150622
  2. CLOBETASOL [Concomitant]
     Active Substance: CLOBETASOL
     Indication: PSORIASIS
     Dosage: UNK UKN, BID
     Route: 061
     Dates: start: 20140820

REACTIONS (2)
  - Latent tuberculosis [Unknown]
  - Tuberculin test positive [Recovered/Resolved]

NARRATIVE: CASE EVENT DATE: 20150618
